FAERS Safety Report 5099065-6 (Version None)
Quarter: 2006Q3

REPORT INFORMATION
  Report Type: 
  Country: None (occurrence: None)
  Receive Date: 20060731
  Receipt Date: 20060207
  Transmission Date: 20061208
  Serious: Yes (Hospitalization)
  Sender: FDA-Public Use
  Company Number: 221903

PATIENT
  Age: 69 Year
  Sex: Female

DRUGS (4)
  1. RITUXAN [Suspect]
     Indication: WALDENSTROM'S MACROGLOBULINAEMIA
     Dates: start: 19990101
  2. SINGULAIR [Concomitant]
  3. DECADRON [Concomitant]
  4. CIMETIDINE [Concomitant]

REACTIONS (1)
  - THROAT TIGHTNESS [None]
